FAERS Safety Report 4381211-0 (Version None)
Quarter: 2004Q2

REPORT INFORMATION
  Report Type: 
  Country: None (occurrence: None)
  Receive Date: 20040614
  Receipt Date: 20040608
  Transmission Date: 20050107
  Serious: Yes (Death)
  Sender: FDA-Public Use
  Company Number: ENT 2004-0109

PATIENT
  Age: 60 Year
  Sex: Male

DRUGS (4)
  1. COMTESS (ENTACAPONE) [Suspect]
     Indication: PARKINSON'S DISEASE
  2. NEORAL [Suspect]
     Indication: RENAL TRANSPLANT
     Dosage: 175 MG
     Route: 048
     Dates: start: 19960124
  3. DOPAMINE HCL [Suspect]
     Indication: PARKINSON'S DISEASE
     Dosage: INCREASING DOSES
  4. PREDNISOLONE [Concomitant]

REACTIONS (7)
  - APHAGIA [None]
  - AZOTAEMIA [None]
  - DEEP VEIN THROMBOSIS [None]
  - GENERAL PHYSICAL HEALTH DETERIORATION [None]
  - HALLUCINATION [None]
  - MEDICATION ERROR [None]
  - PARKINSONISM [None]
